FAERS Safety Report 22657045 (Version 2)
Quarter: 2024Q2

REPORT INFORMATION
  Report Type: Report from Study
  Country: DE (occurrence: DE)
  Receive Date: 20230630
  Receipt Date: 20240610
  Transmission Date: 20240716
  Serious: Yes (Other)
  Sender: FDA-Public Use
  Company Number: DE-002147023-NVSC2021DE257549

PATIENT
  Sex: Male

DRUGS (5)
  1. TABRECTA [Suspect]
     Active Substance: CAPMATINIB
     Indication: Non-small cell lung cancer
     Dosage: 200 MG (2-0-2), BID
     Route: 048
     Dates: start: 20211022, end: 20211105
  2. TABRECTA [Suspect]
     Active Substance: CAPMATINIB
     Dosage: 200 MG, BID
     Route: 048
     Dates: end: 20220204
  3. PREGABALIN [Concomitant]
     Active Substance: PREGABALIN
     Indication: Neuralgia
     Dosage: 300 MG
     Route: 065
     Dates: end: 2021
  4. PREGABALIN [Concomitant]
     Active Substance: PREGABALIN
     Dosage: DOSE REDUCED
     Route: 065
  5. VISCUM ALBUM FRUITING TOP [Concomitant]
     Active Substance: VISCUM ALBUM FRUITING TOP
     Indication: Prostate cancer
     Dosage: UNK
     Route: 065
     Dates: start: 2020

REACTIONS (9)
  - Ascites [Recovering/Resolving]
  - Breast pain [Unknown]
  - Swelling [Unknown]
  - Pleural effusion [Recovering/Resolving]
  - Venous thrombosis limb [Unknown]
  - Vertigo [Unknown]
  - Oedema peripheral [Recovering/Resolving]
  - Fatigue [Unknown]
  - Blood albumin decreased [Unknown]

NARRATIVE: CASE EVENT DATE: 20220201
